FAERS Safety Report 4772764-9 (Version None)
Quarter: 2005Q3

REPORT INFORMATION
  Report Type: 
  Country: None (occurrence: None)
  Receive Date: 20050919
  Receipt Date: 20050912
  Transmission Date: 20060218
  Serious: Yes (Life-Threatening)
  Sender: FDA-Public Use
  Company Number: BR-GLAXOSMITHKLINE-A0574282A

PATIENT
  Age: 38 Year
  Sex: Male
  Weight: 64 kg

DRUGS (3)
  1. DIGOXINA [Suspect]
     Indication: DRUG USE FOR UNKNOWN INDICATION
     Dosage: .25MG PER DAY
     Route: 048
     Dates: start: 20050825
  2. FLUOXETINE [Concomitant]
     Route: 048
     Dates: start: 20050910
  3. CLONAZEPAM [Concomitant]
     Route: 048
     Dates: start: 20050908

REACTIONS (4)
  - ARRHYTHMIA [None]
  - CHILLS [None]
  - HYPERHIDROSIS [None]
  - NAUSEA [None]
